FAERS Safety Report 16048994 (Version 2)
Quarter: 2022Q1

REPORT INFORMATION
  Report Type: Report from Study
  Country: US (occurrence: US)
  Receive Date: 20190307
  Receipt Date: 20220302
  Transmission Date: 20220423
  Serious: Yes (Hospitalization)
  Sender: FDA-Public Use
  Company Number: US-PFIZER INC-2019010383

PATIENT
  Age: 72 Year
  Sex: Male
  Weight: 79.32 kg

DRUGS (7)
  1. INVESTIGATIONAL PRODUCT [Suspect]
     Active Substance: INVESTIGATIONAL PRODUCT
     Indication: Clostridium difficile immunisation
     Dosage: 200 UG, SINGLE DOSE
     Route: 030
     Dates: start: 20181105, end: 20181105
  2. DOCETAXEL [Suspect]
     Active Substance: DOCETAXEL
     Indication: Squamous cell carcinoma
     Dosage: UNK
     Dates: end: 20181205
  3. AZITHROMYCIN [Concomitant]
     Active Substance: AZITHROMYCIN
     Indication: Infection
     Dosage: 500 MG, DAILY
     Route: 048
     Dates: start: 20181228, end: 20181231
  4. DILTIAZEM [Concomitant]
     Active Substance: DILTIAZEM
     Indication: Blood pressure measurement
     Dosage: 120 MG, DAILY
     Route: 048
     Dates: start: 20181228
  5. HYDRALAZINE [Concomitant]
     Active Substance: HYDRALAZINE HYDROCHLORIDE
     Indication: Hypertension
     Dosage: 25 MG, 3X/DAY
     Route: 048
     Dates: start: 20181228
  6. ISOSORBIDE MONONITRATE [Concomitant]
     Active Substance: ISOSORBIDE MONONITRATE
     Indication: Prophylaxis
     Dosage: 30 MG, 1X/DAY (QAM)
     Route: 048
     Dates: start: 20181228
  7. POTASSIUM CHLORIDE [Concomitant]
     Active Substance: POTASSIUM CHLORIDE
     Indication: Electrolyte substitution therapy
     Dosage: 10 MEQ, 2X/DAY (Q12H)
     Route: 048
     Dates: start: 20181228

REACTIONS (1)
  - Cardiac failure congestive [Recovered/Resolved]

NARRATIVE: CASE EVENT DATE: 20190104
